FAERS Safety Report 11402038 (Version 1)
Quarter: 2015Q3

REPORT INFORMATION
  Report Type: Spontaneous
  Country: US (occurrence: US)
  Receive Date: 20150821
  Receipt Date: 20150821
  Transmission Date: 20151125
  Serious: Yes (Hospitalization)
  Sender: FDA-Public Use
  Company Number: US-ROCHE-1359000

PATIENT
  Age: 33 Year
  Sex: Male

DRUGS (4)
  1. SOVALDI [Suspect]
     Active Substance: SOFOSBUVIR
     Indication: CHRONIC HEPATITIS C
     Dosage: THERAPY START DATE 20/FEB/2014
     Route: 065
  2. PEGASYS [Suspect]
     Active Substance: PEGINTERFERON ALFA-2A
     Indication: CHRONIC HEPATITIS C
     Dosage: THERAPY START DATE 20/FEB/2014
     Route: 058
  3. RIBAVIRIN. [Suspect]
     Active Substance: RIBAVIRIN
     Indication: CHRONIC HEPATITIS C
     Dosage: THERAPY START DATE 20/FEB/2014.  DIVIDED DOSES 600/600
     Route: 065
  4. ATIVAN [Concomitant]
     Active Substance: LORAZEPAM

REACTIONS (12)
  - Dyspnoea [Unknown]
  - Starvation [Unknown]
  - Abdominal pain [Unknown]
  - Injection site erythema [Unknown]
  - Injection site bruising [Unknown]
  - Fatigue [Unknown]
  - Hunger [Unknown]
  - Dysuria [Unknown]
  - Nausea [Unknown]
  - Mood altered [Unknown]
  - Anxiety disorder [Unknown]
  - Abdominal distension [Unknown]

NARRATIVE: CASE EVENT DATE: 201402
